FAERS Safety Report 4970785-4 (Version None)
Quarter: 2006Q2

REPORT INFORMATION
  Report Type: 
  Country: None (occurrence: None)
  Receive Date: 20060412
  Receipt Date: 20060331
  Transmission Date: 20061013
  Serious: Yes (Life-Threatening, Hospitalization)
  Sender: FDA-Public Use
  Company Number: ES-ROCHE-442911

PATIENT
  Age: 67 Year
  Sex: Male

DRUGS (2)
  1. PEGASYS [Suspect]
     Indication: DRUG USE FOR UNKNOWN INDICATION
     Dosage: FORM REPORTED AS PREFILLED SYRINGE.
     Route: 065
     Dates: start: 20050201, end: 20050509
  2. COPEGUS [Suspect]
     Indication: DRUG USE FOR UNKNOWN INDICATION
     Dosage: FORM REPORTED AS COATED TABLET.
     Route: 048
     Dates: start: 20050201, end: 20050509

REACTIONS (3)
  - ANAEMIA [None]
  - DISCOMFORT [None]
  - THERAPEUTIC RESPONSE DECREASED [None]
